FAERS Safety Report 18972436 (Version 1)
Quarter: 2021Q1

REPORT INFORMATION
  Report Type: Spontaneous
  Country: US (occurrence: US)
  Receive Date: 20210304
  Receipt Date: 20210304
  Transmission Date: 20210420
  Serious: No
  Sender: FDA-Public Use
  Company Number: None

PATIENT
  Age: 67 Year
  Sex: Male
  Weight: 58.5 kg

DRUGS (7)
  1. SYMBICORT [Suspect]
     Active Substance: BUDESONIDE\FORMOTEROL FUMARATE DIHYDRATE
     Indication: ASTHMA
     Dosage: ?          QUANTITY:120 INHALATION(S);?
     Route: 055
     Dates: start: 20200928, end: 20210204
  2. FISH OIL [Concomitant]
     Active Substance: FISH OIL
  3. TURMERIC [Concomitant]
     Active Substance: HERBALS\TURMERIC
  4. FAMOTIDINE. [Concomitant]
     Active Substance: FAMOTIDINE
  5. VITAMIN C [Concomitant]
     Active Substance: ASCORBIC ACID
  6. MULTI VIT [Concomitant]
     Active Substance: VITAMINS
  7. VIT D [Concomitant]
     Active Substance: VITAMIN D NOS

REACTIONS (2)
  - Aphonia [None]
  - Abnormal dreams [None]
